FAERS Safety Report 11117566 (Version 5)
Quarter: 2015Q3

REPORT INFORMATION
  Report Type: Report from Study
  Country: DK (occurrence: DK)
  Receive Date: 20150517
  Receipt Date: 20150903
  Transmission Date: 20151125
  Serious: Yes (Death, Hospitalization)
  Sender: FDA-Public Use
  Company Number: PHHO2015DK006729

PATIENT
  Age: 71 Year
  Sex: Female
  Weight: 64.2 kg

DRUGS (8)
  1. ALDACTONE [Concomitant]
     Active Substance: SPIRONOLACTONE
     Indication: DIURETIC THERAPY
     Dosage: 50 MG, QD
     Route: 048
     Dates: start: 20150407
  2. METFORMIN [Concomitant]
     Active Substance: METFORMIN HYDROCHLORIDE
     Indication: DIABETES MELLITUS
     Dosage: 850 MG, QD
     Route: 048
     Dates: start: 20121005, end: 20150512
  3. KALEORID [Concomitant]
     Active Substance: POTASSIUM CHLORIDE
     Indication: HYPOKALAEMIC SYNDROME
     Dosage: 750 MG, QD
     Route: 048
     Dates: start: 20150209, end: 20150512
  4. JANUVIA [Concomitant]
     Active Substance: SITAGLIPTIN PHOSPHATE
     Indication: DIABETES MELLITUS
     Dosage: 100 MG, QD
     Route: 048
     Dates: start: 20140711
  5. ANARTAN [Concomitant]
     Indication: HYPERTENSION
     Dosage: 62.5 MG, QD (50+12.5MG)
     Route: 065
     Dates: start: 1995
  6. FURIX [Concomitant]
     Active Substance: FUROSEMIDE
     Indication: DIURETIC THERAPY
     Dosage: 40 MG, QD
     Route: 048
     Dates: start: 20150417
  7. AFINITOR [Suspect]
     Active Substance: EVEROLIMUS
     Indication: BREAST CANCER METASTATIC
     Dosage: 10 MG, QD
     Route: 048
     Dates: start: 20140310, end: 20150511
  8. EXEMESTANE. [Suspect]
     Active Substance: EXEMESTANE
     Indication: BREAST CANCER METASTATIC
     Dosage: 25 MG, QD
     Route: 048
     Dates: start: 20140310, end: 20150511

REACTIONS (6)
  - Hyperkalaemia [Recovering/Resolving]
  - Mobility decreased [Recovering/Resolving]
  - Breast cancer metastatic [Fatal]
  - General physical health deterioration [Not Recovered/Not Resolved]
  - Malignant neoplasm progression [Fatal]
  - Dehydration [Recovering/Resolving]

NARRATIVE: CASE EVENT DATE: 20150415
